FAERS Safety Report 7307456-5 (Version None)
Quarter: 2011Q1

REPORT INFORMATION
  Report Type: 
  Country: None (occurrence: None)
  Receive Date: 20110223
  Receipt Date: 20110217
  Transmission Date: 20110831
  Serious: Yes (Life-Threatening, Hospitalization, Other)
  Sender: FDA-Public Use
  Company Number: JP-PFIZER INC-2011006184

PATIENT
  Age: 92 Year
  Sex: Female
  Weight: 41 kg

DRUGS (2)
  1. CELECOXIB [Suspect]
     Indication: BACK PAIN
     Dosage: 100 MG, 1X/DAY
     Route: 048
     Dates: start: 20101213, end: 20101213
  2. LOXONIN [Suspect]
     Indication: BACK PAIN

REACTIONS (4)
  - GASTROINTESTINAL HAEMORRHAGE [None]
  - DIVERTICULITIS INTESTINAL HAEMORRHAGIC [None]
  - SHOCK [None]
  - ANAEMIA [None]
